FAERS Safety Report 4940614-3 (Version None)
Quarter: 2006Q1

REPORT INFORMATION
  Report Type: 
  Country: None (occurrence: None)
  Receive Date: 20060127
  Receipt Date: 20050323
  Transmission Date: 20060701
  Serious: Yes (Hospitalization)
  Sender: FDA-Public Use
  Company Number: 2005RL000033

PATIENT
  Age: 60 Year
  Sex: Male

DRUGS (1)
  1. PROPAFENONE HCL [Suspect]
     Dosage: 1200 MG;X1;PO
     Route: 048
     Dates: start: 20050319, end: 20050319

REACTIONS (1)
  - OVERDOSE [None]
